FAERS Safety Report 6384536-2 (Version None)
Quarter: 2009Q3

REPORT INFORMATION
  Report Type: 
  Country: None (occurrence: None)
  Receive Date: 20090928
  Receipt Date: 20090914
  Transmission Date: 20100115
  Serious: Yes (Hospitalization)
  Sender: FDA-Public Use
  Company Number: 2009AP003743

PATIENT
  Age: 69 Year
  Sex: Male

DRUGS (9)
  1. RAMIPRIL [Suspect]
     Indication: HYPERTENSION
     Dates: start: 19980101
  2. ASPIRIN [Suspect]
  3. AMITRIPTYLINE HYDROCHLORIDE [Suspect]
  4. ATENOLOL [Suspect]
  5. ATORVASTATIN CALCIUM [Suspect]
  6. FELODIPINE [Suspect]
  7. CAPTOPRIL [Concomitant]
  8. RAMIPRIL [Concomitant]
  9. TRIMETHOPRIM [Concomitant]

REACTIONS (3)
  - ANGIOEDEMA [None]
  - DYSKINESIA [None]
  - SALIVARY HYPERSECRETION [None]
